FAERS Safety Report 18123155 (Version 1)
Quarter: 2020Q3

REPORT INFORMATION
  Report Type: Spontaneous
  Country: AU (occurrence: AU)
  Receive Date: 20200807
  Receipt Date: 20200807
  Transmission Date: 20201103
  Serious: Yes (Other)
  Sender: FDA-Public Use
  Company Number: AU-PFIZER INC-2020294566

PATIENT
  Age: 74 Year
  Sex: Female

DRUGS (4)
  1. LIDOCAINE AND EPINEPHRINE [Suspect]
     Active Substance: EPINEPHRINE\LIDOCAINE HYDROCHLORIDE
     Indication: LOCAL ANAESTHESIA
     Dosage: A TOTAL OF 40 ML OF 1.5% LIGNOCAINE WITH ADRENALINE
  2. BUPIVACAINE HCL [Suspect]
     Active Substance: BUPIVACAINE HYDROCHLORIDE
     Indication: LOCAL ANAESTHESIA
     Dosage: 10 ML (10 ML OF 0.5% BUPIVACAINE AROUND THE DEEPER LAYERS OF THE DISSECTION)
  3. MIDAZOLAM. [Concomitant]
     Active Substance: MIDAZOLAM
     Indication: SEDATION
  4. MIDAZOLAM. [Concomitant]
     Active Substance: MIDAZOLAM
     Indication: SURGERY
     Dosage: UNK
     Route: 042

REACTIONS (7)
  - Dysarthria [Recovered/Resolved]
  - Haematoma [Unknown]
  - Unresponsive to stimuli [Recovered/Resolved]
  - Haemoptysis [Recovered/Resolved]
  - Facial paralysis [Recovered/Resolved]
  - Dysphonia [Recovered/Resolved]
  - Cough [Recovered/Resolved]
